FAERS Safety Report 13896405 (Version 1)
Quarter: 2017Q3

REPORT INFORMATION
  Report Type: Spontaneous
  Country: US (occurrence: US)
  Receive Date: 20170823
  Receipt Date: 20170823
  Transmission Date: 20171127
  Serious: No
  Sender: FDA-Public Use
  Company Number: US-ASTRAZENECA-2017SE85389

PATIENT
  Sex: Female
  Weight: 81.6 kg

DRUGS (4)
  1. BYDUREON [Concomitant]
     Active Substance: EXENATIDE
  2. TRAMADOL. [Concomitant]
     Active Substance: TRAMADOL
     Indication: PAIN
     Route: 048
  3. XIGDUO XR [Suspect]
     Active Substance: DAPAGLIFLOZIN PROPANEDIOL\METFORMIN HYDROCHLORIDE
     Indication: DIABETES MELLITUS
     Dosage: 5/500
     Route: 048
     Dates: start: 201609
  4. XIGDUO XR [Suspect]
     Active Substance: DAPAGLIFLOZIN PROPANEDIOL\METFORMIN HYDROCHLORIDE
     Indication: GLYCOSYLATED HAEMOGLOBIN
     Dosage: 5/500
     Route: 048
     Dates: start: 201609

REACTIONS (10)
  - Headache [Unknown]
  - Inflammation [Unknown]
  - Glycosylated haemoglobin increased [Unknown]
  - Malabsorption [Unknown]
  - Glycosylated haemoglobin decreased [Unknown]
  - Medication residue present [Unknown]
  - Uterine leiomyoma [Unknown]
  - Diarrhoea [Unknown]
  - Abdominal distension [Unknown]
  - Diverticulitis [Unknown]
